FAERS Safety Report 7979011-5 (Version None)
Quarter: 2011Q4

REPORT INFORMATION
  Report Type: 
  Country: None (occurrence: None)
  Receive Date: 20111129
  Receipt Date: 20110907
  Transmission Date: 20120403
  Serious: Yes (Other)
  Sender: FDA-Public Use
  Company Number: PHHY2011US59508

PATIENT
  Age: 72 Year
  Sex: Female

DRUGS (3)
  1. AFINITOR [Suspect]
     Indication: MALIGNANT URINARY TRACT NEOPLASM
     Dosage: 10 MG, DAILY, ORAL
     Route: 048
     Dates: start: 20110624, end: 20110701
  2. AFINITOR [Suspect]
     Indication: MALIGNANT URINARY TRACT NEOPLASM
     Dosage: 10 MG, DAILY, ORAL
     Route: 048
     Dates: start: 20110707, end: 20110808
  3. TRANSFUSIONS (NO INGREDIENTS/SUBSTANCES) [Concomitant]

REACTIONS (5)
  - NAUSEA [None]
  - STOMATITIS [None]
  - WEIGHT DECREASED [None]
  - ORAL CANDIDIASIS [None]
  - FATIGUE [None]
